FAERS Safety Report 7255026-X (Version None)
Quarter: 2011Q1

REPORT INFORMATION
  Report Type: 
  Country: None (occurrence: None)
  Receive Date: 20110129
  Receipt Date: 20100305
  Transmission Date: 20110831
  Serious: Yes (Hospitalization)
  Sender: FDA-Public Use
  Company Number: US-ABBOTT-10P-163-0630582-00

PATIENT
  Sex: Female
  Weight: 45.4 kg

DRUGS (4)
  1. HUMIRA [Suspect]
     Dates: start: 20091001
  2. HUMIRA [Suspect]
     Indication: CROHN'S DISEASE
  3. HUMIRA [Suspect]
     Indication: CROHN'S DISEASE
  4. PENTASA [Concomitant]
     Indication: CROHN'S DISEASE
     Dates: start: 20080101

REACTIONS (6)
  - VOMITING [None]
  - CROHN'S DISEASE [None]
  - HEADACHE [None]
  - ARTHRALGIA [None]
  - INJECTION SITE PAIN [None]
  - NAUSEA [None]
